FAERS Safety Report 23382686 (Version 9)
Quarter: 2024Q2

REPORT INFORMATION
  Report Type: Spontaneous
  Country: ES (occurrence: ES)
  Receive Date: 20240109
  Receipt Date: 20240625
  Transmission Date: 20240715
  Serious: Yes (Hospitalization, Other)
  Sender: FDA-Public Use
  Company Number: ES-BIOVITRUM-2023-ES-018025

PATIENT
  Sex: Female

DRUGS (3)
  1. LINEZOLID [Suspect]
     Active Substance: LINEZOLID
     Indication: Staphylococcal infection
     Dosage: UNK
     Dates: end: 20231219
  2. PEGCETACOPLAN [Suspect]
     Active Substance: PEGCETACOPLAN
     Indication: Paroxysmal nocturnal haemoglobinuria
     Dosage: 3 DOSES ON CONSECUTIVE DAYS, 2 TIMES A WEEK.
     Route: 058
  3. PEGCETACOPLAN [Suspect]
     Active Substance: PEGCETACOPLAN
     Dosage: EVERY 3 DAYS
     Route: 058

REACTIONS (10)
  - Oropharyngeal discomfort [Recovered/Resolved]
  - Haemolysis [Recovered/Resolved]
  - Ear discomfort [Recovered/Resolved]
  - Erythema [Recovered/Resolved]
  - Cytopenia [Recovered/Resolved]
  - Fatigue [Recovered/Resolved]
  - Respiratory tract infection viral [Recovered/Resolved]
  - Haemoglobin decreased [Unknown]
  - Reticulocyte count increased [Unknown]
  - COVID-19 [Unknown]

NARRATIVE: CASE EVENT DATE: 20230101
